FAERS Safety Report 8345968-6 (Version None)
Quarter: 2012Q2

REPORT INFORMATION
  Report Type: 
  Country: None (occurrence: None)
  Receive Date: 20120507
  Receipt Date: 20120427
  Transmission Date: 20120825
  Serious: Yes (Other)
  Sender: FDA-Public Use
  Company Number: 2011SP054274

PATIENT
  Age: 49 Year
  Sex: Female
  Weight: 48 kg

DRUGS (10)
  1. LOPEMIIN [Concomitant]
  2. TANNALBIN [Concomitant]
  3. COREMINAL [Concomitant]
  4. PEGINTERFERON ALFA-2B [Suspect]
     Indication: HEPATITIS C
     Dosage: 80 MCG;QW;SC
     Route: 058
     Dates: start: 20110404
  5. REBETOL [Suspect]
     Indication: HEPATITIS C
     Dosage: 600 MG;QD;PO
     Route: 048
     Dates: start: 20110404
  6. RABEPRAZOLE SODIUM [Concomitant]
  7. RISUMIC [Concomitant]
  8. MIYA BM [Concomitant]
  9. ADSORBIN (ALUMINUM SILICATE.NATURAL) [Concomitant]
  10. ZOLPIDEM [Concomitant]

REACTIONS (3)
  - HYPOAESTHESIA [None]
  - MUSCULOSKELETAL STIFFNESS [None]
  - DYSGEUSIA [None]
